FAERS Safety Report 14220741 (Version 2)
Quarter: 2017Q4

REPORT INFORMATION
  Report Type: Report from Study
  Country: None (occurrence: TN)
  Receive Date: 20171124
  Receipt Date: 20171215
  Transmission Date: 20180321
  Serious: Yes (Hospitalization, Other)
  Sender: FDA-Public Use
  Company Number: TN-ABBVIE-17K-160-2169811-00

PATIENT
  Age: 30 Year
  Sex: Female
  Weight: 53 kg

DRUGS (14)
  1. HUMIRA [Suspect]
     Active Substance: ADALIMUMAB
     Indication: SKIN NECROSIS
     Route: 058
     Dates: start: 20170219, end: 20170219
  2. LEVEMIR [Concomitant]
     Active Substance: INSULIN DETEMIR
     Indication: DIABETES MELLITUS
     Dates: start: 1994
  3. SOLUPRED [Concomitant]
     Active Substance: PREDNISOLONE
     Indication: PYODERMA GANGRENOSUM
     Dates: end: 201703
  4. CALPEROS [Concomitant]
     Active Substance: CALCIUM CARBONATE
     Indication: PRODUCT USED FOR UNKNOWN INDICATION
     Dates: start: 201709
  5. VITAMIN K [Concomitant]
     Active Substance: PHYTONADIONE
     Indication: HEPATIC FAILURE
  6. HUMIRA [Suspect]
     Active Substance: ADALIMUMAB
     Indication: CROHN^S DISEASE
     Route: 058
     Dates: start: 20170205, end: 20170205
  7. ACTONEL [Concomitant]
     Active Substance: RISEDRONATE SODIUM
     Indication: PRODUCT USED FOR UNKNOWN INDICATION
     Dates: start: 201704
  8. NOVORAPID [Concomitant]
     Active Substance: INSULIN ASPART
     Indication: DIABETES MELLITUS
     Dates: start: 1994
  9. SOLUPRED [Concomitant]
     Active Substance: PREDNISOLONE
     Indication: CROHN^S DISEASE
     Dates: start: 201705, end: 201707
  10. HUMIRA [Suspect]
     Active Substance: ADALIMUMAB
     Route: 058
     Dates: start: 20170305, end: 20170305
  11. HUMIRA [Suspect]
     Active Substance: ADALIMUMAB
     Route: 058
     Dates: start: 20170319, end: 20170409
  12. PENI G [Suspect]
     Active Substance: PENICILLIN G
     Indication: ERYSIPELAS
     Route: 065
     Dates: start: 201709, end: 2017
  13. CORTEF [Concomitant]
     Active Substance: HYDROCORTISONE
     Indication: ADRENAL INSUFFICIENCY
     Dates: start: 201704
  14. KALEORID [Concomitant]
     Active Substance: POTASSIUM CHLORIDE
     Indication: PRODUCT USED FOR UNKNOWN INDICATION
     Dates: start: 201709

REACTIONS (17)
  - Retinal disorder [Not Recovered/Not Resolved]
  - Hepatic failure [Not Recovered/Not Resolved]
  - Staphylococcal infection [Unknown]
  - Erysipelas [Recovered/Resolved]
  - Eye haemorrhage [Not Recovered/Not Resolved]
  - Drug-induced liver injury [Not Recovered/Not Resolved]
  - Septic shock [Recovered/Resolved]
  - Vomiting [Recovering/Resolving]
  - Fall [Unknown]
  - Hand fracture [Recovering/Resolving]
  - Staphylococcal sepsis [Not Recovered/Not Resolved]
  - Gastric mucosal lesion [Not Recovered/Not Resolved]
  - Visual acuity reduced [Not Recovered/Not Resolved]
  - Skin necrosis [Unknown]
  - Crohn^s disease [Not Recovered/Not Resolved]
  - Pyoderma gangrenosum [Not Recovered/Not Resolved]
  - Prothrombin level decreased [Recovering/Resolving]

NARRATIVE: CASE EVENT DATE: 2017
